FAERS Safety Report 7804302-8 (Version None)
Quarter: 2011Q4

REPORT INFORMATION
  Report Type: 
  Country: None (occurrence: None)
  Receive Date: 20111010
  Receipt Date: 20110928
  Transmission Date: 20120403
  Serious: Yes (Other)
  Sender: FDA-Public Use
  Company Number: JP-SANOFI-AVENTIS-2011SA064114

PATIENT

DRUGS (4)
  1. FLUOROURACIL [Suspect]
     Route: 065
  2. LEUCOVORIN CALCIUM [Suspect]
     Route: 065
  3. BEVACIZUMAB [Suspect]
     Route: 065
  4. OXALIPLATIN [Suspect]
     Route: 065

REACTIONS (19)
  - PNEUMONIA BACTERIAL [None]
  - INFECTION [None]
  - FEBRILE NEUTROPENIA [None]
  - DRUG HYPERSENSITIVITY [None]
  - CONJUNCTIVITIS [None]
  - STOMATITIS [None]
  - DIVERTICULUM INTESTINAL [None]
  - ANAL ABSCESS [None]
  - HAEMOGLOBIN DECREASED [None]
  - THROMBOCYTOPENIA [None]
  - VOMITING [None]
  - NEUROPATHY PERIPHERAL [None]
  - DIARRHOEA [None]
  - WHITE BLOOD CELL COUNT DECREASED [None]
  - INTERSTITIAL LUNG DISEASE [None]
  - NEUTROPENIA [None]
  - FATIGUE [None]
  - DECREASED APPETITE [None]
  - LIVER DISORDER [None]
